FAERS Safety Report 8160416-7 (Version None)
Quarter: 2012Q1

REPORT INFORMATION
  Report Type: 
  Country: None (occurrence: None)
  Receive Date: 20120223
  Receipt Date: 20120214
  Transmission Date: 20120608
  Serious: Yes (Hospitalization)
  Sender: FDA-Public Use
  Company Number: JP-JNJFOC-20120113468

PATIENT
  Sex: Female
  Weight: 46 kg

DRUGS (14)
  1. METHOTREXATE [Suspect]
     Indication: RHEUMATOID ARTHRITIS
     Dates: start: 20110321, end: 20110615
  2. LANSOPRAZOLE [Concomitant]
     Indication: PROPHYLAXIS
  3. LANIRAPID [Concomitant]
     Route: 048
  4. DABIGATRAN [Concomitant]
     Route: 048
  5. SIMPONI [Suspect]
     Indication: RHEUMATOID ARTHRITIS
     Route: 058
     Dates: start: 20120124
  6. METHOTREXATE [Suspect]
     Dates: start: 20110723, end: 20110820
  7. METHOTREXATE [Suspect]
     Dates: start: 20110802
  8. ALL OTHER THERAPEUTIC PRODUCTS [Concomitant]
     Indication: PROPHYLAXIS
  9. METHOTREXATE [Suspect]
     Dates: start: 20110615, end: 20110723
  10. BEPRIDIL HYDROCHLORIDE [Concomitant]
     Route: 048
  11. SIMPONI [Suspect]
     Route: 058
     Dates: start: 20111202
  12. LOXOPROFEN [Concomitant]
  13. FOLIC ACID [Concomitant]
     Indication: PROPHYLAXIS
  14. SIMPONI [Suspect]
     Route: 058
     Dates: start: 20111227

REACTIONS (1)
  - PNEUMONIA [None]
